FAERS Safety Report 4747961-9 (Version None)
Quarter: 2005Q3

REPORT INFORMATION
  Report Type: 
  Country: None (occurrence: None)
  Receive Date: 20050816
  Receipt Date: 20050803
  Transmission Date: 20060218
  Serious: Yes (Hospitalization)
  Sender: FDA-Public Use
  Company Number: 216639

PATIENT
  Age: 52 Year
  Sex: Female
  Weight: 75.3 kg

DRUGS (3)
  1. AVASTIN [Suspect]
     Indication: COLON CANCER METASTATIC
     Dosage: 5 MG/KG, Q2W, INTRAVENOUS
     Route: 042
     Dates: start: 20050706
  2. 5-FU (FLOUROURACIL) [Concomitant]
  3. LEUCOVORIN CALCIUM [Concomitant]

REACTIONS (5)
  - DYSPHAGIA [None]
  - HERPETIC GINGIVOSTOMATITIS [None]
  - MUCOSAL INFLAMMATION [None]
  - ORAL INTAKE REDUCED [None]
  - VOCAL CORD PARALYSIS [None]
